FAERS Safety Report 14917686 (Version 7)
Quarter: 2018Q3

REPORT INFORMATION
  Report Type: Report from Study
  Country: None (occurrence: CH)
  Receive Date: 20180521
  Receipt Date: 20180727
  Transmission Date: 20181010
  Serious: Yes (Hospitalization, Other)
  Sender: FDA-Public Use
  Company Number: CH-ABBVIE-18K-151-2360176-00

PATIENT
  Age: 79 Year
  Sex: Female

DRUGS (15)
  1. DUODOPA [Suspect]
     Active Substance: CARBIDOPA\LEVODOPA
     Dosage: MORNING DOSE 2.7ML?CONTINUOUS RATE 1.0ML/H?EXTRA DOSE 0.5ML??16H THERAPY
     Route: 050
     Dates: start: 20180415, end: 20180618
  2. DUODOPA [Suspect]
     Active Substance: CARBIDOPA\LEVODOPA
     Dosage: MORNING DOSE 3ML??CONTINUOUS RATE 1.2ML/H??EXTRA DOSE 0.5ML
     Route: 050
     Dates: start: 20180413, end: 20180415
  3. DUODOPA [Suspect]
     Active Substance: CARBIDOPA\LEVODOPA
     Dosage: MORNING DOSE 2.6ML?CONTINUOUS RATE UNKNOWN?EXTRA DOSE 0.9ML?16H THERAPY
     Route: 050
  4. DUODOPA [Suspect]
     Active Substance: CARBIDOPA\LEVODOPA
     Dosage: MORNING DOSE: 2.6ML CONTINUOUS DOSE: 0.9ML/H EXTRA DOSE: 0.5ML
     Route: 050
     Dates: start: 20180720
  5. DUODOPA [Suspect]
     Active Substance: CARBIDOPA\LEVODOPA
     Dosage: MORNING DOSE 2.6ML?CONTINUOUS RATE 2.9M/H?EXTRA DOSE 0.9ML?16H THERAPY
     Route: 050
     Dates: start: 20180624, end: 2018
  6. DUODOPA [Suspect]
     Active Substance: CARBIDOPA\LEVODOPA
     Dosage: MORNING DOSE: 2.8ML CONTINUOUS DOSE: 0.9ML/H EXTRA DOSE: 0.5ML 16H THERAPY
     Route: 050
     Dates: start: 20180718
  7. TRITTICO [Suspect]
     Active Substance: TRAZODONE HYDROCHLORIDE
     Indication: PRODUCT USED FOR UNKNOWN INDICATION
     Dosage: IN THE EVENING
     Route: 065
  8. DUODOPA [Suspect]
     Active Substance: CARBIDOPA\LEVODOPA
     Indication: PARKINSON^S DISEASE
     Route: 050
     Dates: start: 20160824, end: 20180413
  9. DUODOPA [Suspect]
     Active Substance: CARBIDOPA\LEVODOPA
     Dosage: 16H THERAPY?MORNING DOSE 2.6ML?CONTINUOUS RATE 1ML/H?EXTRA DOSE 0.9ML
     Route: 050
     Dates: start: 20180716
  10. DUODOPA [Suspect]
     Active Substance: CARBIDOPA\LEVODOPA
     Dosage: MORNING DOSE: 2.8ML?CONTINUOUS DOSE: 0.9ML/H?EXTRA DOSE: 0.5ML
     Route: 050
  11. DUODOPA [Suspect]
     Active Substance: CARBIDOPA\LEVODOPA
     Dosage: MORNING DOSE: 2.8ML CONTINUOUS DOSE: 0.9ML/H EXTRA DOSE: 0.5ML 16H THERAPY
     Route: 050
     Dates: start: 20180714, end: 20180716
  12. DUODOPA [Suspect]
     Active Substance: CARBIDOPA\LEVODOPA
     Dosage: MORNING DOSE: 2.8ML CONTINUOUS DOSE: 1ML/H EXTRA DOSE: 0.5ML 16H THERAPY
     Route: 050
     Dates: start: 20180716, end: 20180718
  13. DUODOPA [Suspect]
     Active Substance: CARBIDOPA\LEVODOPA
     Dosage: MORNING DOSE 5.8ML?CONTINUOUS RATE 2.9ML/H?EXTRA DOSE 0.8ML??16H THERAPY
     Route: 050
     Dates: start: 20180618, end: 20180624
  14. DUODOPA [Suspect]
     Active Substance: CARBIDOPA\LEVODOPA
     Dosage: MORNING DOSE 2.6ML?CONTINUOUS RATE: 0.9 ML/H?EXTRA DOSE 0.9ML?16H THERAPY
     Route: 050
     Dates: end: 20180716
  15. TRITTICO [Suspect]
     Active Substance: TRAZODONE HYDROCHLORIDE
     Dosage: IN THE EVENING
     Route: 065

REACTIONS (23)
  - Wrong dose [Recovered/Resolved]
  - General physical health deterioration [Unknown]
  - Fall [Unknown]
  - Aphasia [Recovered/Resolved]
  - On and off phenomenon [Recovered/Resolved]
  - Hyperkinesia [Recovered/Resolved]
  - Diet refusal [Recovering/Resolving]
  - Echolalia [Unknown]
  - Pain [Unknown]
  - Unresponsive to stimuli [Recovered/Resolved]
  - Negativism [Unknown]
  - Confusional state [Not Recovered/Not Resolved]
  - Freezing phenomenon [Recovered/Resolved]
  - Gait inability [Recovered/Resolved]
  - Hyperhidrosis [Recovered/Resolved]
  - Cerebral haemorrhage [Recovered/Resolved]
  - Head injury [Unknown]
  - Anxiety [Unknown]
  - Dyskinesia [Recovering/Resolving]
  - Feeding disorder [Recovered/Resolved]
  - Underdose [Unknown]
  - Aggression [Recovered/Resolved]
  - Akinesia [Unknown]

NARRATIVE: CASE EVENT DATE: 2018
